FAERS Safety Report 11335092 (Version 1)
Quarter: 2015Q3

REPORT INFORMATION
  Report Type: Spontaneous
  Country: US (occurrence: None)
  Receive Date: 20150731
  Receipt Date: 20150731
  Transmission Date: 20151125
  Serious: Yes (Life-Threatening, Hospitalization)
  Sender: FDA-Public Use
  Company Number: None

PATIENT
  Age: 27 Year
  Sex: Female
  Weight: 52 kg

DRUGS (3)
  1. OCELLA [Suspect]
     Active Substance: DROSPIRENONE\ETHINYL ESTRADIOL
     Indication: POLYCYSTIC OVARIES
     Route: 048
     Dates: start: 20050601, end: 20141226
  2. MINOCYCLINE [Concomitant]
     Active Substance: MINOCYCLINE\MINOCYCLINE HYDROCHLORIDE
  3. PROBIOTIC [Concomitant]
     Active Substance: PROBIOTICS NOS

REACTIONS (2)
  - Thrombotic stroke [None]
  - Cavernous sinus thrombosis [None]

NARRATIVE: CASE EVENT DATE: 20141226
